FAERS Safety Report 5988168-7 (Version None)
Quarter: 2008Q4

REPORT INFORMATION
  Report Type: 
  Country: None (occurrence: None)
  Receive Date: 20081203
  Receipt Date: 20081125
  Transmission Date: 20090506
  Serious: Yes (Hospitalization)
  Sender: FDA-Public Use
  Company Number: 2008SP024054

PATIENT
  Age: 55 Year
  Sex: Female
  Weight: 61.5 kg

DRUGS (4)
  1. PEG-INTRON [Suspect]
     Indication: HEPATITIS C
     Dosage: 100 MCG; QW; SC
     Route: 058
     Dates: start: 20080912, end: 20081106
  2. REBETOL [Suspect]
     Indication: HEPATITIS C
     Dosage: 1200 MG; QD
  3. ANASTROZOLE [Concomitant]
  4. ATORVASTATIN [Concomitant]

REACTIONS (1)
  - EOSINOPHILIA [None]
